FAERS Safety Report 10404297 (Version 1)
Quarter: 2014Q1

REPORT INFORMATION
  Report Type: Spontaneous
  Country: US (occurrence: None)
  Receive Date: 20131226
  Receipt Date: 20131226
  Transmission Date: 20141002
  Serious: Yes (Other)
  Sender: FDA-Public Use
  Company Number: PHEH2012US009818

PATIENT
  Age: 71 Year
  Sex: Male

DRUGS (1)
  1. EXTAVIA [Suspect]
     Indication: MULTIPLE SCLEROSIS
     Route: 058
     Dates: start: 20120131

REACTIONS (4)
  - Multiple sclerosis [None]
  - Liquid product physical issue [None]
  - Gait disturbance [None]
  - Muscle spasms [None]
